FAERS Safety Report 8487157-0 (Version None)
Quarter: 2012Q3

REPORT INFORMATION
  Report Type: 
  Country: None (occurrence: None)
  Receive Date: 20120704
  Receipt Date: 20120629
  Transmission Date: 20120928
  Serious: Yes (Hospitalization)
  Sender: FDA-Public Use
  Company Number: JP-ROCHE-1077424

PATIENT

DRUGS (3)
  1. RANIBIZUMAB [Suspect]
     Route: 050
     Dates: start: 20120601
  2. RANIBIZUMAB [Suspect]
     Indication: AGE-RELATED MACULAR DEGENERATION
     Route: 050
     Dates: start: 20110708
  3. GATIFLOXACIN [Concomitant]
     Route: 065
     Dates: start: 20110701, end: 20120601

REACTIONS (1)
  - ENDOPHTHALMITIS [None]
